FAERS Safety Report 10041415 (Version 1)
Quarter: 2014Q1

REPORT INFORMATION
  Report Type: Spontaneous
  Country: US (occurrence: None)
  Receive Date: 20140326
  Receipt Date: 20140326
  Transmission Date: 20141002
  Serious: No
  Sender: FDA-Public Use
  Company Number: None

PATIENT
  Age: 13 Year
  Sex: Male
  Weight: 39.1 kg

DRUGS (1)
  1. CRIZOTINIB [Suspect]
     Indication: LYMPHOMA
     Route: 048
     Dates: start: 20140211, end: 20140310

REACTIONS (1)
  - Electrocardiogram QT prolonged [None]
